FAERS Safety Report 8427592-X (Version None)
Quarter: 2012Q2

REPORT INFORMATION
  Report Type: 
  Country: None (occurrence: None)
  Receive Date: 20120611
  Receipt Date: 20120531
  Transmission Date: 20120825
  Serious: Yes (Other)
  Sender: FDA-Public Use
  Company Number: US-ELI_LILLY_AND_COMPANY-US201206000859

PATIENT
  Sex: Female

DRUGS (1)
  1. FORTEO [Suspect]
     Dosage: 20 MG, QD
     Route: 058

REACTIONS (3)
  - KIDNEY INFECTION [None]
  - CARDIAC PACEMAKER REPLACEMENT [None]
  - URINARY TRACT INFECTION [None]
